FAERS Safety Report 11131872 (Version 1)
Quarter: 2015Q2

REPORT INFORMATION
  Report Type: Spontaneous
  Country: NL (occurrence: None)
  Receive Date: 20150520
  Receipt Date: 20150520
  Transmission Date: 20150821
  Serious: Yes (Other)
  Sender: FDA-Public Use
  Company Number: ADR-2015-00972

PATIENT
  Age: 23 Year
  Sex: Female

DRUGS (1)
  1. BACLOFEN. [Suspect]
     Active Substance: BACLOFEN
     Indication: DRUG DEPENDENCE

REACTIONS (6)
  - Urinary tract infection [None]
  - Depression [None]
  - Sexually transmitted disease [None]
  - Hyperhidrosis [None]
  - Off label use [None]
  - Dry mouth [None]

NARRATIVE: CASE EVENT DATE: 20150223
